FAERS Safety Report 13037098 (Version 2)
Quarter: 2017Q1

REPORT INFORMATION
  Report Type: Report from Study
  Country: US (occurrence: US)
  Receive Date: 20161216
  Receipt Date: 20170104
  Transmission Date: 20170428
  Serious: Yes (Hospitalization, Other)
  Sender: FDA-Public Use
  Company Number: US-GILEAD-2016-0226816

PATIENT
  Age: 67 Year
  Sex: Male

DRUGS (2)
  1. IDELALISIB [Suspect]
     Active Substance: IDELALISIB
     Indication: CHRONIC LYMPHOCYTIC LEUKAEMIA
     Dosage: 150 MG, BID
     Route: 048
     Dates: start: 20151228, end: 20160502
  2. IDELALISIB [Suspect]
     Active Substance: IDELALISIB
     Dosage: ALTERNATING BETWEEN 100MG QD AND 100MG BID
     Route: 048
     Dates: start: 20160527, end: 20161116

REACTIONS (11)
  - Drug ineffective [Unknown]
  - Wheezing [Not Recovered/Not Resolved]
  - Platelet count decreased [Unknown]
  - Paranasal sinus hypersecretion [Not Recovered/Not Resolved]
  - Off label use [Recovered/Resolved]
  - Secretion discharge [Not Recovered/Not Resolved]
  - Haemoglobin decreased [Unknown]
  - Red blood cell count decreased [Unknown]
  - Cough [Not Recovered/Not Resolved]
  - White blood cell count increased [Unknown]
  - Platelet transfusion [Unknown]
